FAERS Safety Report 24309749 (Version 5)
Quarter: 2024Q4

REPORT INFORMATION
  Report Type: Report from Study
  Country: US (occurrence: US)
  Receive Date: 20240912
  Receipt Date: 20241108
  Transmission Date: 20250115
  Serious: Yes (Other)
  Sender: ACADIA PHARMACEUTICALS
  Company Number: US-ACADIA PHARMACEUTICALS INC.-ACA-2024-PIM-005267

PATIENT
  Age: 87 Year
  Sex: Male

DRUGS (6)
  1. NUPLAZID [Suspect]
     Active Substance: PIMAVANSERIN TARTRATE
     Indication: Parkinson^s disease psychosis
     Dosage: 34 MILLIGRAM, QD
     Route: 048
     Dates: start: 20240509, end: 202409
  2. VALSARTAN [Concomitant]
     Active Substance: VALSARTAN
  3. VITAMINS [Concomitant]
     Active Substance: VITAMINS
  4. METOPROLOL [Concomitant]
     Active Substance: METOPROLOL
  5. ELIQUIS [Concomitant]
     Active Substance: APIXABAN
  6. SINEMET [Concomitant]
     Active Substance: CARBIDOPA\LEVODOPA

REACTIONS (8)
  - Hallucination [Recovering/Resolving]
  - Hallucination [Recovering/Resolving]
  - Emotional distress [Recovered/Resolved]
  - Nervousness [Recovered/Resolved]
  - Emotional distress [Recovered/Resolved]
  - Delusion [Recovered/Resolved]
  - Agitation [Recovered/Resolved]
  - Agitation [Recovering/Resolving]

NARRATIVE: CASE EVENT DATE: 20240509
